FAERS Safety Report 10260142 (Version 1)
Quarter: 2014Q2

REPORT INFORMATION
  Report Type: Spontaneous
  Country: DE (occurrence: DE)
  Receive Date: 20140625
  Receipt Date: 20140625
  Transmission Date: 20141212
  Serious: Yes (Hospitalization)
  Sender: FDA-Public Use
  Company Number: GXKR2014DE002348

PATIENT
  Sex: Female

DRUGS (2)
  1. ZOLPIDEM HEXAL [Suspect]
     Dosage: 1 DF, UNK
     Route: 048
  2. ALCOHOL [Concomitant]
     Dosage: 3 SLUGS

REACTIONS (2)
  - Convulsion [Unknown]
  - Loss of consciousness [Unknown]
